FAERS Safety Report 8303939-X (Version None)
Quarter: 2012Q2

REPORT INFORMATION
  Report Type: 
  Country: None (occurrence: None)
  Receive Date: 20120423
  Receipt Date: 20120410
  Transmission Date: 20120825
  Serious: Yes (Death, Hospitalization)
  Sender: FDA-Public Use
  Company Number: ES-CELGENEUS-144-50794-12041093

PATIENT
  Sex: Male
  Weight: 91 kg

DRUGS (4)
  1. ITRACONAZOLE [Concomitant]
     Route: 065
  2. VIDAZA [Suspect]
     Route: 065
     Dates: start: 20080602, end: 20091005
  3. ONDANSETRON [Concomitant]
     Indication: ANTIEMETIC SUPPORTIVE CARE
     Route: 065
     Dates: start: 20080802, end: 20091005
  4. BACTRIM [Concomitant]
     Route: 065

REACTIONS (2)
  - ACUTE MYELOID LEUKAEMIA [None]
  - SUBDURAL HAEMATOMA [None]
